FAERS Safety Report 9414746 (Version 1)
Quarter: 2013Q3

REPORT INFORMATION
  Report Type: Report from Study
  Country: US (occurrence: US)
  Receive Date: 20130723
  Receipt Date: 20130723
  Transmission Date: 20140515
  Serious: Yes (Hospitalization)
  Sender: FDA-Public Use
  Company Number: US-ROCHE-1251751

PATIENT
  Age: 60 Year
  Sex: Female
  Weight: 81.7 kg

DRUGS (9)
  1. PEG-INTERFERON ALFA 2A [Suspect]
     Indication: HEPATITIS C
     Route: 065
     Dates: start: 20121115
  2. RIBAVIRIN [Suspect]
     Indication: HEPATITIS C
     Route: 048
     Dates: start: 20121115
  3. TELAPREVIR [Suspect]
     Indication: HEPATITIS C
     Route: 065
     Dates: start: 20121115
  4. NOVOLOG [Concomitant]
  5. AMLODIPIN [Concomitant]
  6. LANTUS [Concomitant]
  7. NORCO [Concomitant]
  8. LISINOPRIL [Concomitant]
  9. SPIRONOLACTONE [Concomitant]

REACTIONS (2)
  - Dehydration [Unknown]
  - Renal failure acute [Unknown]
